FAERS Safety Report 15840193 (Version 2)
Quarter: 2019Q2

REPORT INFORMATION
  Report Type: Report from Study
  Country: None (occurrence: LB)
  Receive Date: 20190117
  Receipt Date: 20190426
  Transmission Date: 20190711
  Serious: Yes (Hospitalization, Disabling)
  Sender: FDA-Public Use
  Company Number: LB-ABBVIE-19K-093-2622505-00

PATIENT
  Age: 28 Year
  Sex: Male
  Weight: 91 kg

DRUGS (2)
  1. HUMIRA [Suspect]
     Active Substance: ADALIMUMAB
     Route: 058
     Dates: start: 20181006, end: 201812
  2. HUMIRA [Suspect]
     Active Substance: ADALIMUMAB
     Indication: HIDRADENITIS
     Dosage: 160 MG LOADING DOSE
     Route: 058
     Dates: start: 20180929, end: 20180929

REACTIONS (4)
  - Mobility decreased [Recovering/Resolving]
  - Joint range of motion decreased [Recovering/Resolving]
  - Hidradenitis [Recovering/Resolving]
  - C-reactive protein increased [Recovering/Resolving]

NARRATIVE: CASE EVENT DATE: 201812
